FAERS Safety Report 10399211 (Version 1)
Quarter: 2014Q3

REPORT INFORMATION
  Report Type: Spontaneous
  Country: US (occurrence: None)
  Receive Date: 20140818
  Receipt Date: 20140818
  Transmission Date: 20150326
  Serious: Yes (Other)
  Sender: FDA-Public Use
  Company Number: None

PATIENT
  Age: 61 Year
  Sex: Female
  Weight: 51.71 kg

DRUGS (1)
  1. CIPROFLOXACIN. [Suspect]
     Active Substance: CIPROFLOXACIN
     Indication: DIVERTICULITIS
     Route: 048
     Dates: start: 20140726, end: 20140730

REACTIONS (7)
  - Quality of life decreased [None]
  - Myalgia [None]
  - Neuropathy peripheral [None]
  - Confusional state [None]
  - Nightmare [None]
  - Tendonitis [None]
  - Neuralgia [None]

NARRATIVE: CASE EVENT DATE: 20140726
